FAERS Safety Report 22147161 (Version 1)
Quarter: 2023Q1

REPORT INFORMATION
  Report Type: Spontaneous
  Country: GB (occurrence: GB)
  Receive Date: 20230328
  Receipt Date: 20230328
  Transmission Date: 20230417
  Serious: Yes (Hospitalization)
  Sender: FDA-Public Use
  Company Number: GB-BAYER-2023A039278

PATIENT
  Age: 85 Year
  Sex: Male

DRUGS (9)
  1. RIVAROXABAN [Suspect]
     Active Substance: RIVAROXABAN
     Indication: Atrial fibrillation
     Dosage: 20 MG, QD
     Route: 048
     Dates: end: 202012
  2. FINASTERIDE [Concomitant]
     Active Substance: FINASTERIDE
     Indication: Benign prostatic hyperplasia
     Dosage: 5 MG, QD
     Route: 048
  3. FUROSEMIDE [Concomitant]
     Active Substance: FUROSEMIDE
     Indication: Cardiac amyloidosis
     Dosage: 20 MG, QD
     Route: 048
  4. FUROSEMIDE [Concomitant]
     Active Substance: FUROSEMIDE
     Indication: Polyuria
  5. BISOPROLOL [Concomitant]
     Active Substance: BISOPROLOL
     Indication: Atrial fibrillation
     Dosage: 1.25 MG, QD
  6. PRAVASTATIN [Concomitant]
     Active Substance: PRAVASTATIN
     Indication: Hypercholesterolaemia
     Dosage: 20 MG, QD
     Route: 048
  7. VITAMIN B3 [Concomitant]
     Active Substance: NIACIN
     Indication: Vitamin B complex deficiency
     Dosage: UNK UNK, QD
     Route: 048
  8. VITAMIN B3 [Concomitant]
     Active Substance: NIACIN
     Indication: Supplementation therapy
  9. MEBEVERINE [Concomitant]
     Active Substance: MEBEVERINE
     Indication: Irritable bowel syndrome
     Dosage: 405 MG, QD
     Route: 048

REACTIONS (1)
  - Anaemia [Recovered/Resolved]

NARRATIVE: CASE EVENT DATE: 20201211
